FAERS Safety Report 11073574 (Version 1)
Quarter: 2015Q2

REPORT INFORMATION
  Report Type: Spontaneous
  Country: US (occurrence: US)
  Receive Date: 20150428
  Receipt Date: 20150428
  Transmission Date: 20150821
  Serious: No
  Sender: FDA-Public Use
  Company Number: US-MYLANLABS-2014M1001164

PATIENT
  Age: 38 Year
  Sex: Male
  Weight: 90.7 kg

DRUGS (1)
  1. DIVALPROEX SODIUM DELAYED-RELEASE TABLETS, USP [Suspect]
     Active Substance: DIVALPROEX SODIUM
     Indication: SEIZURE
     Dosage: 500 MG, BID
     Route: 048

REACTIONS (2)
  - Irritability [Not Recovered/Not Resolved]
  - Fatigue [Not Recovered/Not Resolved]

NARRATIVE: CASE EVENT DATE: 201405
